FAERS Safety Report 5763168-0 (Version None)
Quarter: 2008Q2

REPORT INFORMATION
  Report Type: 
  Country: None (occurrence: None)
  Receive Date: 20080609
  Receipt Date: 20080530
  Transmission Date: 20081010
  Serious: Yes (Death, Hospitalization)
  Sender: FDA-Public Use
  Company Number: US-AMGEN-US283181

PATIENT
  Sex: Male

DRUGS (3)
  1. ROMIPLOSTIM - BLINDED [Suspect]
     Indication: MYELODYSPLASTIC SYNDROME
     Route: 058
     Dates: start: 20080428, end: 20080527
  2. NEUPOGEN [Suspect]
     Indication: MYELODYSPLASTIC SYNDROME
     Dates: start: 20080527, end: 20080529
  3. DILAUDID [Concomitant]

REACTIONS (2)
  - DEHYDRATION [None]
  - PYREXIA [None]
